FAERS Safety Report 8229754-3 (Version None)
Quarter: 2012Q1

REPORT INFORMATION
  Report Type: 
  Country: None (occurrence: None)
  Receive Date: 20120322
  Receipt Date: 20120312
  Transmission Date: 20120608
  Serious: Yes (Other)
  Sender: FDA-Public Use
  Company Number: FR-ALLERGAN-1108563US

PATIENT

DRUGS (1)
  1. OZURDEX [Suspect]
     Indication: MACULAR OEDEMA
     Route: 031

REACTIONS (3)
  - DEVICE DISLOCATION [None]
  - CORNEAL OEDEMA [None]
  - OCULAR HYPERTENSION [None]
